FAERS Safety Report 4657603-9 (Version None)
Quarter: 2005Q2

REPORT INFORMATION
  Report Type: 
  Country: None (occurrence: None)
  Receive Date: 20050506
  Receipt Date: 20050421
  Transmission Date: 20051028
  Serious: Yes (Hospitalization)
  Sender: FDA-Public Use
  Company Number: KII-2005-0016186

PATIENT
  Age: 28 Year
  Sex: Female

DRUGS (2)
  1. OXYCODONE HCL [Suspect]
     Dosage: SEE TEXT, ORAL
     Route: 048
  2. ANTIBIOTICS() [Suspect]
     Dosage: SEE TEXT, ORAL
     Route: 048

REACTIONS (2)
  - DRUG EXPOSURE DURING PREGNANCY [None]
  - INTENTIONAL MISUSE [None]
